FAERS Safety Report 6911662-9 (Version None)
Quarter: 2010Q3

REPORT INFORMATION
  Report Type: 
  Country: None (occurrence: None)
  Receive Date: 20100806
  Receipt Date: 20100730
  Transmission Date: 20110219
  Serious: Yes (Hospitalization)
  Sender: FDA-Public Use
  Company Number: PHHO2010DE10630

PATIENT
  Sex: Female
  Weight: 69 kg

DRUGS (3)
  1. AFINITOR [Suspect]
     Indication: ADENOCARCINOMA
     Dosage: 5 MG
     Route: 048
     Dates: start: 20100218, end: 20100714
  2. SORAFENIB COMP-SORA+ [Suspect]
     Indication: ADENOCARCINOMA
     Dosage: 400 MG
     Route: 048
     Dates: start: 20100204, end: 20100714
  3. IBUPROFEN [Suspect]
     Indication: PAIN
     Dosage: 400 MG PRN
     Route: 048
     Dates: start: 20100409, end: 20100708

REACTIONS (3)
  - GASTRITIS EROSIVE [None]
  - HAEMOGLOBIN DECREASED [None]
  - UPPER GASTROINTESTINAL HAEMORRHAGE [None]
